FAERS Safety Report 9742602 (Version 1)
Quarter: 2013Q4

REPORT INFORMATION
  Report Type: Spontaneous
  Country: US (occurrence: US)
  Receive Date: 20131210
  Receipt Date: 20131210
  Transmission Date: 20140711
  Serious: No
  Sender: FDA-Public Use
  Company Number: US-GILEAD-2009-0024607

PATIENT
  Sex: Female
  Weight: 84.82 kg

DRUGS (16)
  1. LETAIRIS [Suspect]
     Indication: PULMONARY ARTERIAL HYPERTENSION
     Route: 048
     Dates: start: 20081219
  2. REVATIO [Concomitant]
  3. VIAGRA [Concomitant]
  4. COUMADIN [Concomitant]
  5. AMLODIPINE [Concomitant]
  6. DIOVAN [Concomitant]
  7. LANOXIN [Concomitant]
  8. LEVAQUIN [Concomitant]
  9. ALEVE [Concomitant]
  10. LEVOXYL [Concomitant]
  11. ASPIRIN [Concomitant]
  12. REGLAN [Concomitant]
  13. NEXIUM [Concomitant]
  14. POTASSIUM CL [Concomitant]
  15. VITAMIN D COMPLEX [Concomitant]
  16. MULTIVITAMIN [Concomitant]

REACTIONS (3)
  - Dizziness [Unknown]
  - Balance disorder [Unknown]
  - Hypotension [Unknown]
